FAERS Safety Report 7597557-9 (Version None)
Quarter: 2011Q3

REPORT INFORMATION
  Report Type: 
  Country: None (occurrence: None)
  Receive Date: 20110708
  Receipt Date: 20110628
  Transmission Date: 20111222
  Serious: Yes (Life-Threatening, Hospitalization)
  Sender: FDA-Public Use
  Company Number: JP-ROCHE-709055

PATIENT
  Sex: Female
  Weight: 53.3 kg

DRUGS (11)
  1. FLUMAZENIL [Suspect]
     Indication: PREMEDICATION
     Dosage: ROUTE REPORTED AS: IV NOS
     Route: 042
     Dates: start: 20070727, end: 20070727
  2. CINAL [Concomitant]
     Dates: start: 20001227, end: 20070809
  3. POLYFUL [Concomitant]
     Dates: start: 20010402, end: 20070809
  4. OMEPRAZOLE [Concomitant]
     Indication: GASTRIC ULCER
     Dates: start: 20051118, end: 20070809
  5. SCOPOLAMINE [Suspect]
     Indication: PREMEDICATION
     Dosage: GENERIC CONTENT WAS REPORTED AS HYOSCINE BUTYLBROMIDE
     Route: 042
     Dates: start: 20070727, end: 20070727
  6. MIDAZOLAM HCL [Concomitant]
     Dates: start: 20070724
  7. ALFAROL [Concomitant]
     Indication: OSTEOPOROSIS
  8. BIOFERMIN [Concomitant]
  9. PRAVASTATIN SODIUM [Concomitant]
     Indication: DYSLIPIDAEMIA
  10. LANDEL [Concomitant]
     Indication: ESSENTIAL HYPERTENSION
  11. GLEEVEC [Concomitant]
     Indication: CHRONIC MYELOID LEUKAEMIA
     Dates: start: 20011201, end: 20070809

REACTIONS (1)
  - AGRANULOCYTOSIS [None]
